FAERS Safety Report 7884523-9 (Version None)
Quarter: 2011Q4

REPORT INFORMATION
  Report Type: 
  Country: None (occurrence: None)
  Receive Date: 20111102
  Receipt Date: 20111025
  Transmission Date: 20120403
  Serious: Yes (Other)
  Sender: FDA-Public Use
  Company Number: US-JNJFOC-20111011286

PATIENT
  Sex: Female
  Weight: 65.32 kg

DRUGS (5)
  1. METHOTREXATE [Concomitant]
     Indication: RHEUMATOID ARTHRITIS
     Route: 048
     Dates: start: 20080101
  2. PREDNISONE [Concomitant]
     Indication: RHEUMATOID ARTHRITIS
     Route: 048
     Dates: start: 20080101
  3. REMICADE [Suspect]
     Indication: RHEUMATOID ARTHRITIS
     Route: 042
     Dates: start: 20090101
  4. LEUCOVORIN CALCIUM [Concomitant]
     Indication: ABDOMINAL DISCOMFORT
     Dosage: 4 HOURS AFTER METHOTREXATE
     Route: 048
     Dates: start: 20080101
  5. FOLIC ACID [Concomitant]
     Indication: RHEUMATOID ARTHRITIS
     Route: 048
     Dates: start: 20080101

REACTIONS (2)
  - CERVICAL DYSPLASIA [None]
  - RHEUMATOID ARTHRITIS [None]
